FAERS Safety Report 4485166-X (Version None)
Quarter: 2004Q4

REPORT INFORMATION
  Report Type: 
  Country: None (occurrence: None)
  Receive Date: 20041026
  Receipt Date: 20040126
  Transmission Date: 20050328
  Serious: No
  Sender: FDA-Public Use
  Company Number: US-BRISTOL-MYERS SQUIBB COMPANY-12487047

PATIENT
  Age: 86 Year
  Sex: Male
  Weight: 77 kg

DRUGS (5)
  1. GLUCOPHAGE XR [Suspect]
     Indication: DIABETES MELLITUS
     Route: 048
  2. ATENOLOL [Concomitant]
  3. AVAPRO [Concomitant]
  4. ASPIRIN [Concomitant]
  5. MOBIC [Concomitant]

REACTIONS (3)
  - ANOREXIA [None]
  - HEADACHE [None]
  - WEIGHT DECREASED [None]
